FAERS Safety Report 25416608 (Version 1)
Quarter: 2025Q2

REPORT INFORMATION
  Report Type: Spontaneous
  Country: CH (occurrence: CH)
  Receive Date: 20250610
  Receipt Date: 20250610
  Transmission Date: 20250716
  Serious: Yes (Other)
  Sender: GILEAD
  Company Number: CH-GILEAD-2025-0715551

PATIENT
  Age: 53 Year
  Sex: Male

DRUGS (2)
  1. EMTRICITABINE\RILPIVIRINE\TENOFOVIR DISOPROXIL FUMARATE [Suspect]
     Active Substance: EMTRICITABINE\RILPIVIRINE\TENOFOVIR DISOPROXIL FUMARATE
     Indication: Antiretroviral therapy
     Dosage: 1 TABLET PER DAY
     Route: 065
  2. VALIUM [Concomitant]
     Active Substance: DIAZEPAM

REACTIONS (5)
  - Cardiac arrest [Unknown]
  - Muscle spasms [Unknown]
  - Bronchospasm [Unknown]
  - Discomfort [Recovering/Resolving]
  - Product quality issue [Unknown]

NARRATIVE: CASE EVENT DATE: 20250513
